FAERS Safety Report 8610013-1 (Version None)
Quarter: 2012Q3

REPORT INFORMATION
  Report Type: 
  Country: None (occurrence: None)
  Receive Date: 20120822
  Receipt Date: 20120718
  Transmission Date: 20120928
  Serious: Yes (Other)
  Sender: FDA-Public Use
  Company Number: JP-009507513-1207JPN001487

PATIENT

DRUGS (7)
  1. TELAVIC [Suspect]
     Indication: HEPATITIS C
     Route: 048
     Dates: start: 20120523
  2. PEG-INTRON [Suspect]
     Dosage: 1.5MCG/KG/WEEK
     Route: 058
     Dates: start: 20120523, end: 20120627
  3. PEG-INTRON [Suspect]
     Dosage: 0.8MCG/KG/WEEK
     Route: 058
     Dates: start: 20120704
  4. REBETOL [Suspect]
     Route: 048
     Dates: start: 20120627
  5. REBETOL [Suspect]
     Route: 048
     Dates: start: 20120523, end: 20120626
  6. PEG-INTRON [Suspect]
     Indication: HEPATITIS C
     Dosage: 1.5MCG/KG
     Route: 058
     Dates: start: 20120523
  7. REBETOL [Suspect]
     Indication: HEPATITIS C
     Route: 048
     Dates: start: 20120523

REACTIONS (3)
  - BLOOD URIC ACID INCREASED [None]
  - RENAL IMPAIRMENT [None]
  - BLOOD CREATININE INCREASED [None]
